FAERS Safety Report 8515362 (Version 4)
Quarter: 2012Q4

REPORT INFORMATION
  Report Type: 
  Country: JP (occurrence: JP)
  Receive Date: 20120417
  Receipt Date: 20120911
  Transmission Date: 20130627
  Serious: Yes (Death, Life-Threatening, Other)
  Sender: FDA-Public Use
  Company Number: PHHY2012JP030473

PATIENT
  Age: 63 Year
  Sex: Male
  Weight: 66 kg

DRUGS (7)
  1. NEORAL [Suspect]
     Indication: CHRONIC INFLAMMATORY DEMYELINATING POLYRADICULONEUROPATHY
     Dosage: 150 mg,daily
     Route: 048
     Dates: start: 20110914, end: 20111108
  2. PREDNISOLONE [Concomitant]
     Indication: CHRONIC INFLAMMATORY DEMYELINATING POLYRADICULONEUROPATHY
     Dosage: 60 mg, daily
     Route: 048
     Dates: start: 20110806, end: 20111204
  3. PACIL [Concomitant]
     Indication: INFECTION
     Dosage: 600 mg
     Route: 041
     Dates: start: 20111028
  4. VENOGLOBULIN [Concomitant]
     Indication: INFECTION
     Dosage: 5 g
     Route: 041
     Dates: start: 20111130, end: 20111202
  5. VFEND [Concomitant]
     Indication: INFECTION
     Dosage: 400 mg
     Route: 041
     Dates: start: 20111201, end: 20111206
  6. MEROPEN [Concomitant]
     Indication: PNEUMONIA
     Dosage: 2 g, UNK
     Route: 041
     Dates: start: 20111028, end: 20111107
  7. PARIET [Concomitant]
     Indication: PROPHYLAXIS
     Dosage: 10 mg, UNK
     Route: 048
     Dates: start: 20110806

REACTIONS (4)
  - Multi-organ failure [Fatal]
  - Pneumocystis jiroveci pneumonia [Recovering/Resolving]
  - Respiratory failure [Unknown]
  - Gastroenteritis norovirus [Recovered/Resolved]
